FAERS Safety Report 17491836 (Version 2)
Quarter: 2020Q1

REPORT INFORMATION
  Report Type: Spontaneous
  Country: RU (occurrence: RU)
  Receive Date: 20200304
  Receipt Date: 20200304
  Transmission Date: 20200409
  Serious: Yes (Other)
  Sender: FDA-Public Use
  Company Number: RU-ROCHE-2558171

PATIENT
  Sex: Male

DRUGS (1)
  1. OCREVUS [Suspect]
     Active Substance: OCRELIZUMAB
     Indication: MULTIPLE SCLEROSIS
     Dosage: THE DOSE 1000 MG WAS ADMINISTERED DURING THE WEEK
     Route: 065

REACTIONS (3)
  - Duodenal ulcer perforation [Unknown]
  - Intentional product use issue [Unknown]
  - Off label use [Unknown]
